FAERS Safety Report 24385920 (Version 1)
Quarter: 2024Q4

REPORT INFORMATION
  Report Type: Spontaneous
  Country: AR (occurrence: AR)
  Receive Date: 20241001
  Receipt Date: 20241001
  Transmission Date: 20250114
  Serious: Yes (Hospitalization, Other)
  Sender: MERCK
  Company Number: AR-009507513-2409ARG009951

PATIENT
  Age: 50 Year
  Sex: Male

DRUGS (1)
  1. KEYTRUDA [Suspect]
     Active Substance: PEMBROLIZUMAB
     Indication: Thymoma
     Dosage: 200 MG, SINGLE DOSE

REACTIONS (6)
  - Rash maculo-papular [Unknown]
  - Mucocutaneous rash [Recovering/Resolving]
  - Myasthenic syndrome [Recovering/Resolving]
  - Respiratory paralysis [Unknown]
  - Confusional state [Unknown]
  - Off label use [Unknown]

NARRATIVE: CASE EVENT DATE: 20240901
